FAERS Safety Report 23447404 (Version 1)
Quarter: 2024Q1

REPORT INFORMATION
  Report Type: Spontaneous
  Country: GB (occurrence: GB)
  Receive Date: 20240126
  Receipt Date: 20240126
  Transmission Date: 20240409
  Serious: Yes (Hospitalization, Disabling)
  Sender: FDA-Public Use
  Company Number: None

PATIENT
  Sex: Female

DRUGS (9)
  1. ALENDRONATE SODIUM [Suspect]
     Active Substance: ALENDRONATE SODIUM
  2. CALCIUM CARBONATE\CHOLECALCIFEROL [Concomitant]
     Active Substance: CALCIUM CARBONATE\CHOLECALCIFEROL
  3. BUPRENORPHINE [Concomitant]
     Active Substance: BUPRENORPHINE
  4. CARBOCYSTEINE [Concomitant]
     Active Substance: CARBOCYSTEINE
  5. LACTULOSE [Concomitant]
     Active Substance: LACTULOSE
  6. OMEPRAZOLE [Concomitant]
     Active Substance: OMEPRAZOLE
  7. PREGABALIN [Concomitant]
     Active Substance: PREGABALIN
  8. SIMVASTATIN [Concomitant]
     Active Substance: SIMVASTATIN
  9. GLYCOPYRRONIUM\INDACATEROL [Concomitant]
     Active Substance: GLYCOPYRRONIUM\INDACATEROL

REACTIONS (1)
  - Groin pain [Recovering/Resolving]
